FAERS Safety Report 19402134 (Version 2)
Quarter: 2023Q2

REPORT INFORMATION
  Report Type: Spontaneous
  Country: US (occurrence: US)
  Receive Date: 20210610
  Receipt Date: 20230531
  Transmission Date: 20230722
  Serious: No
  Sender: FDA-Public Use
  Company Number: US-PFIZER INC-2021420561

PATIENT
  Age: 45 Year
  Sex: Female
  Weight: 48.53 kg

DRUGS (3)
  1. HYDROMORPHONE HYDROCHLORIDE [Suspect]
     Active Substance: HYDROMORPHONE HYDROCHLORIDE
     Indication: Neck pain
     Dosage: 2 MG/ML, AS NEEDED (2 MG/ML, AS NEEDED EVERY 6 HOURS)
     Route: 030
     Dates: start: 202006
  2. HYDROMORPHONE HYDROCHLORIDE [Suspect]
     Active Substance: HYDROMORPHONE HYDROCHLORIDE
     Indication: Neck injury
     Dosage: 2 MG/ML, AS NEEDED (2 MG/ML, AS NEEDED EVERY 6 HOURS)
     Route: 030
  3. HYDROMORPHONE HYDROCHLORIDE [Suspect]
     Active Substance: HYDROMORPHONE HYDROCHLORIDE
     Indication: Back injury
     Dosage: UNK (2 MG/ML)

REACTIONS (5)
  - Drug ineffective [Unknown]
  - Skin induration [Unknown]
  - Poor quality product administered [Unknown]
  - Product quality issue [Unknown]
  - Suspected product tampering [Unknown]
